FAERS Safety Report 7960964-6 (Version None)
Quarter: 2011Q4

REPORT INFORMATION
  Report Type: 
  Country: None (occurrence: None)
  Receive Date: 20111202
  Receipt Date: 20111124
  Transmission Date: 20120403
  Serious: Yes (Other)
  Sender: FDA-Public Use
  Company Number: 2011MA017004

PATIENT
  Age: 83 Year
  Sex: Male

DRUGS (13)
  1. PROPRANOLOL [Concomitant]
  2. VISCOTEARS [Concomitant]
  3. NIFEDIPINE [Concomitant]
  4. INDAPAMIDE [Concomitant]
  5. GLIPIZIDE [Concomitant]
  6. DEPO-MEDROL [Concomitant]
  7. PANDEMRIX [Concomitant]
  8. PRAVASTATIN [Concomitant]
  9. OMEPRAZOLE [Concomitant]
  10. METFORMIN HCL [Concomitant]
  11. MEBEVERINE [Concomitant]
  12. NAPROXEN [Suspect]
     Dates: start: 20110929
  13. OVAR [Concomitant]

REACTIONS (2)
  - RECTAL HAEMORRHAGE [None]
  - EPISTAXIS [None]
